FAERS Safety Report 20052304 (Version 2)
Quarter: 2022Q4

REPORT INFORMATION
  Report Type: Spontaneous
  Country: FR (occurrence: FR)
  Receive Date: 20211110
  Receipt Date: 20221207
  Transmission Date: 20230113
  Serious: Yes (Death, Other)
  Sender: FDA-Public Use
  Company Number: FR-JNJFOC-20211059907

PATIENT
  Age: 68 Year
  Sex: Female

DRUGS (6)
  1. BENDAMUSTINE [Suspect]
     Active Substance: BENDAMUSTINE
     Indication: Plasma cell myeloma
     Dosage: 70 MG, QW (2 WEEKS/CYCLE)
     Route: 065
     Dates: end: 20191022
  2. BENDAMUSTINE [Suspect]
     Active Substance: BENDAMUSTINE
     Dosage: 70 MG, QW (2 WEEKS/CYCLE)
     Route: 065
     Dates: end: 20191122
  3. DEXAMETHASONE [Suspect]
     Active Substance: DEXAMETHASONE
     Indication: Plasma cell myeloma
     Dosage: 20 MG, QW (4 WEEKS / CYCLE)
     Route: 065
     Dates: end: 20191022
  4. DEXAMETHASONE [Suspect]
     Active Substance: DEXAMETHASONE
     Dosage: 20 MG, QW (4 WEEKS/ CYCLE)
     Route: 065
     Dates: end: 20191122
  5. VELCADE [Suspect]
     Active Substance: BORTEZOMIB
     Indication: Plasma cell myeloma
     Dosage: 2.2 MG, QW (4 WEEKS/CYCLE)
     Route: 065
     Dates: end: 20191022
  6. VELCADE [Suspect]
     Active Substance: BORTEZOMIB
     Dosage: 2.2 MG, QW (4 WEEKS/CYCLE)
     Route: 065
     Dates: end: 20191122

REACTIONS (3)
  - Plasma cell myeloma [Fatal]
  - Acute febrile neutrophilic dermatosis [Unknown]
  - Intentional product use issue [Unknown]

NARRATIVE: CASE EVENT DATE: 20191103
